FAERS Safety Report 4374182-4 (Version None)
Quarter: 2004Q2

REPORT INFORMATION
  Report Type: 
  Country: None (occurrence: None)
  Receive Date: 20040604
  Receipt Date: 20040601
  Transmission Date: 20050107
  Serious: Yes (Death, Hospitalization)
  Sender: FDA-Public Use
  Company Number: TPA2003A00618

PATIENT
  Age: 53 Year
  Sex: Male
  Weight: 112.0385 kg

DRUGS (6)
  1. ACTOS [Suspect]
     Indication: DIABETES MELLITUS NON-INSULIN-DEPENDENT
     Dosage: SEE IMAGE
     Route: 048
     Dates: start: 20021015, end: 20021120
  2. ACTOS [Suspect]
     Indication: DIABETES MELLITUS NON-INSULIN-DEPENDENT
     Dosage: SEE IMAGE
     Route: 048
     Dates: start: 20021120, end: 20030101
  3. GLUCOVANCE (GLIBOMET) [Concomitant]
  4. MONOPRIL [Concomitant]
  5. CERELBREX (CELECOXIB) [Concomitant]
  6. TYLENOL [Concomitant]

REACTIONS (52)
  - ABDOMINAL DISTENSION [None]
  - ABDOMINAL PAIN [None]
  - ADHESION [None]
  - ANURIA [None]
  - ASCITES [None]
  - B-CELL LYMPHOMA [None]
  - BACILLUS INFECTION [None]
  - BACTERIAL INFECTION [None]
  - BLOOD ALBUMIN DECREASED [None]
  - CANDIDIASIS [None]
  - CARDIOMEGALY [None]
  - CELLULITIS [None]
  - COLONIC HAEMORRHAGE [None]
  - COUGH [None]
  - CRYPTOGENIC CIRRHOSIS [None]
  - CYTOMEGALOVIRUS INFECTION [None]
  - DILATATION ATRIAL [None]
  - ESCHERICHIA INFECTION [None]
  - FASCIITIS [None]
  - GASTROINTESTINAL NECROSIS [None]
  - HAEMATOCRIT DECREASED [None]
  - HEPATIC ENCEPHALOPATHY [None]
  - HEPATIC FAILURE [None]
  - HEPATIC FIBROSIS [None]
  - HEPATIC INFARCTION [None]
  - HEPATIC NECROSIS [None]
  - HEPATITIS [None]
  - INFLAMMATION [None]
  - LARGE INTESTINAL ULCER [None]
  - LIVER DISORDER [None]
  - LIVER TRANSPLANT [None]
  - LYMPHADENOPATHY MEDIASTINAL [None]
  - MULTI-ORGAN FAILURE [None]
  - MUSCLE ATROPHY [None]
  - MUSCLE NECROSIS [None]
  - MYCOBACTERIUM AVIUM COMPLEX INFECTION [None]
  - NEUTROPENIA [None]
  - OEDEMA PERIPHERAL [None]
  - PLATELET COUNT DECREASED [None]
  - PLEURAL EFFUSION [None]
  - PURULENT DISCHARGE [None]
  - PYREXIA [None]
  - SEPSIS [None]
  - SEPTIC SHOCK [None]
  - SERUM FERRITIN INCREASED [None]
  - SPLENIC INFARCTION [None]
  - SPLENOMEGALY [None]
  - SWELLING [None]
  - T-CELL LYMPHOMA [None]
  - THROMBOCYTOPENIA [None]
  - WEIGHT INCREASED [None]
  - WHITE BLOOD CELL COUNT DECREASED [None]
